FAERS Safety Report 6693359-6 (Version None)
Quarter: 2010Q2

REPORT INFORMATION
  Report Type: 
  Country: None (occurrence: None)
  Receive Date: 20100420
  Receipt Date: 20100408
  Transmission Date: 20101027
  Serious: Yes (Hospitalization)
  Sender: FDA-Public Use
  Company Number: 7001020

PATIENT
  Age: 49 Year
  Sex: Female

DRUGS (4)
  1. REBIF [Suspect]
     Indication: MULTIPLE SCLEROSIS
     Dosage: 44 MCG, 3 IN 1 WK, SUBCUTANEOUS
     Route: 058
     Dates: start: 20041117
  2. METOPROLOL (METOPROLOL) [Concomitant]
  3. EXFORGE [Concomitant]
  4. GABAPENTIN [Concomitant]

REACTIONS (11)
  - ABDOMINAL PAIN UPPER [None]
  - ANXIETY [None]
  - FEELING ABNORMAL [None]
  - HYPERTENSION [None]
  - HYPOAESTHESIA [None]
  - INJECTION SITE EXFOLIATION [None]
  - INJECTION SITE PRURITUS [None]
  - INJECTION SITE SCAR [None]
  - IRRITABLE BOWEL SYNDROME [None]
  - SPEECH DISORDER [None]
  - VISION BLURRED [None]
